FAERS Safety Report 9548865 (Version 1)
Quarter: 2013Q3

REPORT INFORMATION
  Report Type: Spontaneous
  Country: SE (occurrence: SE)
  Receive Date: 20130924
  Receipt Date: 20130924
  Transmission Date: 20140515
  Serious: Yes (Other)
  Sender: FDA-Public Use
  Company Number: SE-PFIZER INC-2013272124

PATIENT
  Sex: Male
  Weight: 95 kg

DRUGS (3)
  1. INSPRA [Suspect]
     Indication: HYPERTENSION
     Dosage: 50 MG, 1X/DAY
     Dates: start: 2005
  2. NORVASC [Suspect]
     Indication: HYPERTENSION
     Dosage: 10 MG, 1X/DAY
     Dates: start: 2005
  3. ALVEDON [Suspect]
     Dosage: 6 DF, DAILY
     Route: 048

REACTIONS (1)
  - Gastric ulcer [Unknown]
